FAERS Safety Report 23240365 (Version 1)
Quarter: 2023Q4

REPORT INFORMATION
  Report Type: Spontaneous
  Country: US (occurrence: US)
  Receive Date: 20231129
  Receipt Date: 20231129
  Transmission Date: 20240109
  Serious: Yes (Other)
  Sender: FDA-Public Use
  Company Number: US-GUERBET / LLC-US-20230105

PATIENT
  Age: 57 Year
  Sex: Male
  Weight: 145.6 kg

DRUGS (1)
  1. OPTIRAY 350 [Suspect]
     Active Substance: IOVERSOL
     Indication: Computerised tomogram
     Route: 042
     Dates: start: 20231120, end: 20231120

REACTIONS (6)
  - Chest discomfort [Recovered/Resolved]
  - Hypoaesthesia oral [Recovered/Resolved]
  - Euphoric mood [Recovered/Resolved]
  - Dyspnoea [Recovered/Resolved]
  - Tongue oedema [Recovered/Resolved]
  - Dizziness [Recovered/Resolved]

NARRATIVE: CASE EVENT DATE: 20231120
